FAERS Safety Report 22850446 (Version 2)
Quarter: 2023Q4

REPORT INFORMATION
  Report Type: Spontaneous
  Country: IT (occurrence: IT)
  Receive Date: 20230822
  Receipt Date: 20231110
  Transmission Date: 20240110
  Serious: Yes (Hospitalization, Other)
  Sender: FDA-Public Use
  Company Number: IT-DOCGEN-2304950

PATIENT
  Age: 53 Year
  Sex: Male

DRUGS (27)
  1. ARIPIPRAZOLE [Suspect]
     Active Substance: ARIPIPRAZOLE
     Indication: Schizophrenia
     Dosage: UNK
     Route: 065
  2. VALPROIC ACID [Suspect]
     Active Substance: VALPROIC ACID
     Indication: Schizophrenia
     Dosage: 1000 MG, QD
     Route: 065
     Dates: start: 2020
  3. VALPROIC ACID [Suspect]
     Active Substance: VALPROIC ACID
     Indication: Schizophrenia
  4. LURASIDONE [Suspect]
     Active Substance: LURASIDONE
     Indication: Schizophrenia
     Dosage: 34 MG, QD
     Route: 065
  5. LURASIDONE [Suspect]
     Active Substance: LURASIDONE
     Indication: Therapy partial responder
     Dosage: 18.5 MG, QD
     Route: 065
     Dates: start: 202107, end: 202107
  6. LURASIDONE [Suspect]
     Active Substance: LURASIDONE
     Indication: Schizophrenia
     Dosage: 37 MG, QD
     Route: 065
     Dates: start: 202108, end: 202108
  7. LURASIDONE [Suspect]
     Active Substance: LURASIDONE
     Dosage: 74 MG, QD
     Route: 065
     Dates: start: 202108, end: 202204
  8. LURASIDONE [Suspect]
     Active Substance: LURASIDONE
     Dosage: 111 MG, QD
     Route: 065
     Dates: start: 202204, end: 202301
  9. LURASIDONE [Suspect]
     Active Substance: LURASIDONE
     Dosage: 74 MG, QD
     Route: 065
     Dates: start: 202301
  10. LURASIDONE [Suspect]
     Active Substance: LURASIDONE
     Dosage: 74 MG + 37 MG
  11. CLOZAPINE [Suspect]
     Active Substance: CLOZAPINE
     Indication: Schizophrenia
     Dosage: 500 MG, QD
     Route: 065
     Dates: start: 2020
  12. CLOZAPINE [Suspect]
     Active Substance: CLOZAPINE
     Indication: Schizophrenia
     Dosage: 500 MG, QD
     Route: 065
  13. CLOZAPINE [Suspect]
     Active Substance: CLOZAPINE
     Dosage: 400 MG, QD
     Route: 065
     Dates: start: 202107, end: 202108
  14. CLOZAPINE [Suspect]
     Active Substance: CLOZAPINE
     Dosage: 375 MG, QD
     Route: 065
     Dates: start: 202108, end: 202108
  15. CLOZAPINE [Suspect]
     Active Substance: CLOZAPINE
     Dosage: 350 MG, QD
     Route: 065
     Dates: start: 202108, end: 202109
  16. CLOZAPINE [Suspect]
     Active Substance: CLOZAPINE
     Dosage: 450 MG, QD
     Route: 065
     Dates: start: 202107, end: 202107
  17. CLOZAPINE [Suspect]
     Active Substance: CLOZAPINE
     Dosage: 325 MG, QD
     Route: 065
     Dates: start: 202109, end: 202109
  18. CLOZAPINE [Suspect]
     Active Substance: CLOZAPINE
     Dosage: 225 MG, QD
     Route: 065
     Dates: start: 202204, end: 202209
  19. CLOZAPINE [Suspect]
     Active Substance: CLOZAPINE
     Dosage: 275 MG, QD
     Route: 065
     Dates: start: 202110, end: 202204
  20. CLOZAPINE [Suspect]
     Active Substance: CLOZAPINE
     Dosage: 200 MG, QD
     Route: 065
     Dates: start: 202209
  21. CLOZAPINE [Suspect]
     Active Substance: CLOZAPINE
     Dosage: 300 MG, QD
     Route: 065
     Dates: start: 202109, end: 202110
  22. LORAZEPAM [Concomitant]
     Active Substance: LORAZEPAM
     Indication: Schizophrenia
     Dosage: UNK
     Route: 065
  23. LORAZEPAM [Concomitant]
     Active Substance: LORAZEPAM
     Indication: Schizophrenia
     Dosage: UNK
     Route: 065
  24. LORAZEPAM [Concomitant]
     Active Substance: LORAZEPAM
     Indication: Schizophrenia
  25. BIPERIDEN [Concomitant]
     Active Substance: BIPERIDEN
     Indication: Schizophrenia
     Dosage: 4 MILLIGRAM, UNK
     Route: 065
  26. BIPERIDEN [Concomitant]
     Active Substance: BIPERIDEN
     Indication: Schizophrenia
  27. BIPERIDEN [Concomitant]
     Active Substance: BIPERIDEN
     Indication: Schizophrenia

REACTIONS (6)
  - Hallucination, auditory [Unknown]
  - Therapy partial responder [Unknown]
  - Weight decreased [Unknown]
  - Somnolence [Recovered/Resolved]
  - Myalgia [Recovered/Resolved]
  - Weight increased [Recovered/Resolved]

NARRATIVE: CASE EVENT DATE: 20200101
